FAERS Safety Report 5146119-1 (Version None)
Quarter: 2006Q4

REPORT INFORMATION
  Report Type: 
  Country: None (occurrence: None)
  Receive Date: 20061108
  Receipt Date: 20061030
  Transmission Date: 20070319
  Serious: Yes (Hospitalization)
  Sender: FDA-Public Use
  Company Number: 2006CG01769

PATIENT
  Age: 22180 Day
  Sex: Male
  Weight: 63 kg

DRUGS (6)
  1. NEXIUM [Suspect]
     Route: 048
     Dates: end: 20060112
  2. TAZOCILLINE [Suspect]
     Indication: ESCHERICHIA SEPSIS
     Route: 042
     Dates: start: 20051223, end: 20060112
  3. TANGANIL [Concomitant]
     Route: 048
  4. FRAXIPARINE [Concomitant]
     Route: 058
     Dates: start: 20051215
  5. ALLOPURINOL [Concomitant]
  6. SANMIGRAN [Concomitant]

REACTIONS (5)
  - DRUG INEFFECTIVE [None]
  - DRUG LEVEL BELOW THERAPEUTIC [None]
  - ESCHERICHIA SEPSIS [None]
  - HAEMOGLOBIN DECREASED [None]
  - NEUTROPENIA [None]
